FAERS Safety Report 16970441 (Version 1)
Quarter: 2019Q4

REPORT INFORMATION
  Report Type: Spontaneous
  Country: ES (occurrence: ES)
  Receive Date: 20191029
  Receipt Date: 20191029
  Transmission Date: 20200122
  Serious: Yes (Life-Threatening, Hospitalization, Other)
  Sender: FDA-Public Use
  Company Number: ES-PFIZER INC-2019465486

PATIENT
  Age: 77 Year
  Sex: Female

DRUGS (2)
  1. ENOXAPARIN SODIUM. [Interacting]
     Active Substance: ENOXAPARIN SODIUM
     Indication: ATRIAL FLUTTER
     Dosage: 120 MG, DAILY (120 MG, QD)
     Route: 048
     Dates: start: 20171224, end: 20171231
  2. AMIODARONE HCL [Suspect]
     Active Substance: AMIODARONE HYDROCHLORIDE
     Indication: ATRIAL FLUTTER
     Dosage: 400 MG, DAILY (400 MG, QD)
     Route: 048
     Dates: start: 20171224, end: 20171231

REACTIONS (2)
  - Cerebral haematoma [Recovering/Resolving]
  - Drug interaction [Unknown]

NARRATIVE: CASE EVENT DATE: 20171230
